FAERS Safety Report 8624511-8 (Version None)
Quarter: 2012Q3

REPORT INFORMATION
  Report Type: 
  Country: None (occurrence: None)
  Receive Date: 20120827
  Receipt Date: 20120815
  Transmission Date: 20120928
  Serious: Yes (Hospitalization)
  Sender: FDA-Public Use
  Company Number: CA-VERTEX PHARMACEUTICAL INC.-2012-020133

PATIENT
  Age: 59 Year
  Sex: Female
  Weight: 44 kg

DRUGS (7)
  1. NADOLOL [Concomitant]
  2. INCIVEK [Suspect]
     Indication: HEPATITIS C
     Dosage: 750 MG, TID
     Route: 048
  3. PEG-INTRON [Suspect]
     Indication: HEPATITIS C
     Dosage: 120 UNK, UNK
     Route: 058
  4. LASIX [Concomitant]
  5. ATENOLOL [Concomitant]
  6. SPIRONOLACTONE [Concomitant]
  7. EPREX [Concomitant]
     Route: 042

REACTIONS (2)
  - OESOPHAGEAL VARICES HAEMORRHAGE [None]
  - ASCITES [None]
